FAERS Safety Report 24268463 (Version 1)
Quarter: 2024Q3

REPORT INFORMATION
  Report Type: Spontaneous
  Country: US (occurrence: None)
  Receive Date: 20240829
  Receipt Date: 20240829
  Transmission Date: 20241016
  Serious: No
  Sender: Public
  Company Number: None

PATIENT
  Age: 56 Year
  Sex: Female

DRUGS (1)
  1. RINVOQ [Suspect]
     Active Substance: UPADACITINIB
     Indication: Dermatitis atopic
     Dosage: FREQUENCY : DAILY;?
     Route: 048
     Dates: start: 202408, end: 202408

REACTIONS (7)
  - Chest pain [None]
  - Chest discomfort [None]
  - Dyspnoea [None]
  - Paranoia [None]
  - Dizziness [None]
  - Vision blurred [None]
  - Haemoptysis [None]

NARRATIVE: CASE EVENT DATE: 20240822
